FAERS Safety Report 4337526-5 (Version None)
Quarter: 2004Q2

REPORT INFORMATION
  Report Type: 
  Country: None (occurrence: None)
  Receive Date: 20040413
  Receipt Date: 20040407
  Transmission Date: 20050107
  Serious: Yes (Other)
  Sender: FDA-Public Use
  Company Number: US-GLAXOSMITHKLINE-A0506474A

PATIENT

DRUGS (1)
  1. WELLBUTRIN [Suspect]
     Route: 048

REACTIONS (2)
  - CONVULSION [None]
  - MEDICATION ERROR [None]
